FAERS Safety Report 4999261-X (Version None)
Quarter: 2006Q2

REPORT INFORMATION
  Report Type: 
  Country: None (occurrence: None)
  Receive Date: 20060510
  Receipt Date: 20060510
  Transmission Date: 20061013
  Serious: Yes (Other)
  Sender: FDA-Public Use
  Company Number: None

PATIENT
  Age: 61 Year
  Sex: Male
  Weight: 92.5338 kg

DRUGS (1)
  1. TIPRANAVIR  250 MG [Suspect]
     Indication: HIV INFECTION
     Dosage: 500 MG TWICE DAILY PO
     Route: 048
     Dates: start: 20050810, end: 20060208

REACTIONS (2)
  - HEPATIC FIBROSIS [None]
  - HEPATOCELLULAR DAMAGE [None]
